FAERS Safety Report 8620167-9 (Version None)
Quarter: 2012Q3

REPORT INFORMATION
  Report Type: 
  Country: None (occurrence: None)
  Receive Date: 20120824
  Receipt Date: 20120810
  Transmission Date: 20120928
  Serious: Yes (Hospitalization, Other)
  Sender: FDA-Public Use
  Company Number: JP-VERTEX PHARMACEUTICAL INC.-AE-2012-009476

PATIENT
  Age: 64 Year
  Sex: Male

DRUGS (15)
  1. TREBIANOM [Concomitant]
     Route: 048
     Dates: end: 20120620
  2. TALION [Concomitant]
     Route: 048
     Dates: start: 20120511, end: 20120620
  3. REBETOL [Concomitant]
     Indication: HEPATITIS C
     Dosage: 800 MG, UNK
     Route: 048
     Dates: start: 20120511, end: 20120620
  4. MIGLITOL [Concomitant]
     Dosage: 3 DF, QD
     Route: 048
     Dates: start: 20120628, end: 20120702
  5. FAMOTIDINE [Concomitant]
     Dosage: 40 MG, QD
     Route: 048
     Dates: start: 20120628, end: 20120702
  6. PEG-INTRON [Concomitant]
     Indication: HEPATITIS C
     Dosage: 1.5 A?G/KG, UNK
     Route: 058
     Dates: start: 20120511, end: 20120615
  7. BIO-THREE [Concomitant]
     Dosage: 3 DF, QD
     Route: 048
     Dates: start: 20120624, end: 20120720
  8. PEG-INTRON [Concomitant]
     Dosage: 1.5 A?G/KG, UNK
     Route: 058
     Dates: start: 20120629, end: 20120629
  9. FAMOSTAGINE-D [Concomitant]
     Route: 048
     Dates: end: 20120620
  10. REBETOL [Concomitant]
     Dosage: 400 MG, UNK
     Route: 048
     Dates: start: 20120629, end: 20120704
  11. VX-950 [Suspect]
     Indication: HEPATITIS C
     Dosage: 2250 MG, QD
     Route: 048
     Dates: start: 20120511, end: 20120620
  12. NEO-MINOPHAGEN C [Concomitant]
     Route: 042
     Dates: end: 20120615
  13. URDESTON [Concomitant]
     Route: 048
     Dates: end: 20120620
  14. SITAGLIPTIN PHOSPHATE [Concomitant]
     Route: 048
     Dates: start: 20120516, end: 20120620
  15. FEBURIC [Concomitant]
     Route: 048
     Dates: start: 20120525, end: 20120620

REACTIONS (2)
  - PANCREATITIS ACUTE [None]
  - ANAEMIA [None]
